FAERS Safety Report 6099311-6 (Version None)
Quarter: 2009Q1

REPORT INFORMATION
  Report Type: 
  Country: None (occurrence: None)
  Receive Date: 20090303
  Receipt Date: 20090224
  Transmission Date: 20090719
  Serious: Yes (Other)
  Sender: FDA-Public Use
  Company Number: US-JNJFOC-20090206370

PATIENT
  Sex: Female
  Weight: 63.5 kg

DRUGS (2)
  1. DURAGESIC-100 [Suspect]
     Indication: PAIN
     Route: 062
  2. OXYCODONE [Concomitant]
     Indication: BREAKTHROUGH PAIN
     Route: 048

REACTIONS (6)
  - DEVICE LEAKAGE [None]
  - HYPERSOMNIA [None]
  - INCORRECT DRUG ADMINISTRATION DURATION [None]
  - LETHARGY [None]
  - LYME DISEASE [None]
  - RHEUMATOID ARTHRITIS [None]
